FAERS Safety Report 8795873 (Version 1)
Quarter: 2012Q4

REPORT INFORMATION
  Report Type: 
  Country: US (occurrence: US)
  Receive Date: 20120920
  Receipt Date: 20120920
  Transmission Date: 20130627
  Serious: Yes (Other)
  Sender: FDA-Public Use
  Company Number: US-PFIZER INC-2012232566

PATIENT
  Age: 75 Year
  Sex: Female
  Weight: 63.49 kg

DRUGS (8)
  1. LYRICA [Suspect]
     Indication: FIBROMYALGIA
     Dosage: 200 mg, 1x/day
  2. LYRICA [Suspect]
     Indication: NEUROPATHY PERIPHERAL
  3. TOVIAZ [Suspect]
     Indication: HYPERTONIC BLADDER
     Dosage: 8 mg, 1x/day
  4. LIPITOR [Concomitant]
     Indication: BLOOD CHOLESTEROL INCREASED
     Dosage: 20 mg, 1x/day
  5. CELEBREX [Suspect]
     Indication: ARTHRITIS
     Dosage: 200 mg, 1x/day
  6. LEVAQUIN [Suspect]
     Indication: HYPERSENSITIVITY
     Dosage: UNK
     Dates: end: 2012
  7. TOPROL [Concomitant]
     Indication: HYPERTENSION
     Dosage: 25 mg, 1x/day
  8. LEXAPRO [Concomitant]
     Dosage: 10 mg, 1x/day

REACTIONS (3)
  - Cystitis [Recovered/Resolved]
  - Nausea [Not Recovered/Not Resolved]
  - Malaise [Recovered/Resolved]
